FAERS Safety Report 7556614-3 (Version None)
Quarter: 2011Q2

REPORT INFORMATION
  Report Type: 
  Country: None (occurrence: None)
  Receive Date: 20110610
  Receipt Date: 20110530
  Transmission Date: 20111010
  Serious: Yes (Other)
  Sender: FDA-Public Use
  Company Number: 2010SP020718

PATIENT
  Age: 38 Year
  Sex: Female

DRUGS (1)
  1. CELESTONE CHRONODOSE (BETAMETHASONE SODIUM PHOSPHATE/ACETATE /00309501 [Suspect]
     Indication: NEONATAL RESPIRATORY DISTRESS SYNDROME PROPHYLAXIS
     Dosage: 24 MG, IM;
     Route: 030
     Dates: start: 20100407

REACTIONS (12)
  - STRESS [None]
  - SOMNOLENCE [None]
  - BLOOD POTASSIUM DECREASED [None]
  - PREMATURE DELIVERY [None]
  - ANXIETY [None]
  - ACCIDENTAL OVERDOSE [None]
  - DRUG EXPOSURE DURING PREGNANCY [None]
  - HYPERTENSION [None]
  - BLOOD GLUCOSE INCREASED [None]
  - DIARRHOEA [None]
  - DIZZINESS [None]
  - FLUSHING [None]
